FAERS Safety Report 24305387 (Version 2)
Quarter: 2024Q4

REPORT INFORMATION
  Report Type: Spontaneous
  Country: JP (occurrence: JP)
  Receive Date: 20240911
  Receipt Date: 20241009
  Transmission Date: 20250115
  Serious: Yes (Other)
  Sender: ROCHE
  Company Number: JP-CHUGAI-2024030786

PATIENT
  Age: 70 Year
  Sex: Male

DRUGS (7)
  1. MYCOPHENOLATE MOFETIL [Suspect]
     Active Substance: MYCOPHENOLATE MOFETIL
     Indication: Prophylaxis against transplant rejection
     Dosage: UNK
     Route: 050
  2. TACROLIMUS [Concomitant]
     Active Substance: TACROLIMUS
     Indication: Prophylaxis against transplant rejection
     Dosage: UNK
     Route: 065
  3. EVEROLIMUS [Concomitant]
     Active Substance: EVEROLIMUS
     Indication: Prophylaxis against transplant rejection
     Dosage: UNK
     Route: 065
  4. METHYLPREDNISOLONE [Concomitant]
     Active Substance: METHYLPREDNISOLONE
     Indication: Prophylaxis against transplant rejection
     Dosage: UNK
     Route: 065
  5. BASILIXIMAB [Concomitant]
     Active Substance: BASILIXIMAB
     Indication: Prophylaxis against transplant rejection
     Dosage: UNK
     Route: 065
  6. THYMOGLOBULINE [Concomitant]
     Active Substance: LAPINE T-LYMPHOCYTE IMMUNE GLOBULIN
     Indication: Transplant rejection
     Dosage: UNK
     Route: 065
  7. RITUXIMAB [Concomitant]
     Active Substance: RITUXIMAB
     Indication: Transplant rejection
     Dosage: UNK
     Route: 042

REACTIONS (1)
  - Atypical haemolytic uraemic syndrome [Unknown]
